FAERS Safety Report 22159488 (Version 2)
Quarter: 2023Q2

REPORT INFORMATION
  Report Type: Report from Study
  Country: US (occurrence: US)
  Receive Date: 20230331
  Receipt Date: 20230410
  Transmission Date: 20230721
  Serious: Yes (Hospitalization, Other)
  Sender: FDA-Public Use
  Company Number: US-BRISTOL-MYERS SQUIBB COMPANY-2023-045737

PATIENT
  Age: 58 Year
  Sex: Male
  Weight: 75.75 kg

DRUGS (13)
  1. REVLIMID [Suspect]
     Active Substance: LENALIDOMIDE
     Indication: Plasma cell myeloma
     Dosage: DOSE : 25MG;     FREQ : 21 DAYS ON 7 DAYS OFF
     Route: 048
     Dates: start: 20230323
  2. REVLIMID [Suspect]
     Active Substance: LENALIDOMIDE
     Route: 048
  3. PROLIA [Concomitant]
     Active Substance: DENOSUMAB
     Indication: Product used for unknown indication
  4. FOSINOPRIL SODIUM [Concomitant]
     Active Substance: FOSINOPRIL SODIUM
     Indication: Product used for unknown indication
  5. DEXAMETHASONE [Concomitant]
     Active Substance: DEXAMETHASONE
     Indication: Product used for unknown indication
  6. NEXIUM [Concomitant]
     Active Substance: ESOMEPRAZOLE MAGNESIUM
     Indication: Product used for unknown indication
  7. AMLODIPINE BESYLATE [Concomitant]
     Active Substance: AMLODIPINE BESYLATE
     Indication: Product used for unknown indication
  8. BYSTOLIC [Concomitant]
     Active Substance: NEBIVOLOL HYDROCHLORIDE
     Indication: Product used for unknown indication
  9. ALLOPURINOL [Concomitant]
     Active Substance: ALLOPURINOL
     Indication: Product used for unknown indication
  10. CARDURA [Concomitant]
     Active Substance: DOXAZOSIN MESYLATE
     Indication: Product used for unknown indication
  11. AMBIEN [Concomitant]
     Active Substance: ZOLPIDEM TARTRATE
     Indication: Product used for unknown indication
  12. VITAMIN D3 [Concomitant]
     Active Substance: CHOLECALCIFEROL
     Indication: Product used for unknown indication
  13. EVENITY [Concomitant]
     Active Substance: ROMOSOZUMAB-AQQG
     Indication: Product used for unknown indication

REACTIONS (4)
  - Anaemia [Unknown]
  - Performance status decreased [Unknown]
  - Pancytopenia [Unknown]
  - Nausea [Unknown]

NARRATIVE: CASE EVENT DATE: 20230301
